FAERS Safety Report 7747065-7 (Version None)
Quarter: 2011Q3

REPORT INFORMATION
  Report Type: 
  Country: None (occurrence: None)
  Receive Date: 20110913
  Receipt Date: 20110908
  Transmission Date: 20111222
  Serious: Yes (Other)
  Sender: FDA-Public Use
  Company Number: PHHY2011AU80689

PATIENT
  Sex: Female

DRUGS (2)
  1. ZOLEDRONOC ACID [Suspect]
     Indication: OSTEOPOROSIS
     Dosage: 5 MG, UNK
     Route: 042
     Dates: start: 20110908
  2. PHENERGAN HCL [Concomitant]
     Dosage: 25 MG, UNK

REACTIONS (4)
  - PALPITATIONS [None]
  - VISION BLURRED [None]
  - NAUSEA [None]
  - HEAD DISCOMFORT [None]
